FAERS Safety Report 15758040 (Version 1)
Quarter: 2018Q4

REPORT INFORMATION
  Report Type: Spontaneous
  Country: US (occurrence: US)
  Receive Date: 20181225
  Receipt Date: 20181225
  Transmission Date: 20190205
  Serious: No
  Sender: FDA-Public Use
  Company Number: PHEH2018US053604

PATIENT
  Sex: Female

DRUGS (1)
  1. AFINITOR [Suspect]
     Active Substance: EVEROLIMUS
     Indication: NEOPLASM MALIGNANT
     Dosage: 5 MG, QD
     Route: 048

REACTIONS (4)
  - Nausea [Unknown]
  - Sleep disorder [Unknown]
  - Feeling hot [Unknown]
  - Hot flush [Unknown]
